FAERS Safety Report 24954797 (Version 1)
Quarter: 2025Q1

REPORT INFORMATION
  Report Type: Spontaneous
  Country: US (occurrence: None)
  Receive Date: 20250210
  Receipt Date: 20250210
  Transmission Date: 20250409
  Serious: Yes (Death)
  Sender: FDA-CTU
  Company Number: None

PATIENT
  Age: 72 Year
  Sex: Male

DRUGS (1)
  1. ERLEADA [Suspect]
     Active Substance: APALUTAMIDE
     Indication: Prostate cancer
     Dosage: FREQUENCY : DAILY;?
     Route: 048

REACTIONS (8)
  - Malignant neoplasm progression [None]
  - Prostatic specific antigen increased [None]
  - Pain [None]
  - Hypophagia [None]
  - Weight decreased [None]
  - Blood pressure decreased [None]
  - Cardiac failure [None]
  - Embolism [None]
